FAERS Safety Report 16296153 (Version 4)
Quarter: 2019Q3

REPORT INFORMATION
  Report Type: Report from Study
  Country: None (occurrence: JP)
  Receive Date: 20190510
  Receipt Date: 20190711
  Transmission Date: 20191004
  Serious: Yes (Hospitalization)
  Sender: FDA-Public Use
  Company Number: JP-ABBVIE-19S-087-2736728-00

PATIENT
  Age: 71 Year
  Sex: Female

DRUGS (2)
  1. DUODOPA [Suspect]
     Active Substance: CARBIDOPA\LEVODOPA
     Indication: PARKINSON^S DISEASE
     Route: 050
     Dates: start: 20190319, end: 2019
  2. DUODOPA [Suspect]
     Active Substance: CARBIDOPA\LEVODOPA
     Route: 050
     Dates: start: 2019

REACTIONS (17)
  - Abdominal discomfort [Unknown]
  - Blood iron decreased [Unknown]
  - Gastric ulcer [Unknown]
  - Malaise [Unknown]
  - Stress [Unknown]
  - Asthenia [Unknown]
  - Stoma site discharge [Unknown]
  - Haematemesis [Unknown]
  - Palpitations [Unknown]
  - On and off phenomenon [Unknown]
  - Nausea [Unknown]
  - Anaemia [Unknown]
  - Back pain [Unknown]
  - Chest discomfort [Unknown]
  - Dyskinesia [Unknown]
  - Hypophagia [Recovering/Resolving]
  - Stoma site erythema [Unknown]

NARRATIVE: CASE EVENT DATE: 2019
